FAERS Safety Report 23481930 (Version 1)
Quarter: 2024Q1

REPORT INFORMATION
  Report Type: Spontaneous
  Country: FR (occurrence: FR)
  Receive Date: 20240205
  Receipt Date: 20240205
  Transmission Date: 20240410
  Serious: Yes (Death)
  Sender: FDA-Public Use
  Company Number: FR-AFSSAPS-RN2023001110

PATIENT
  Age: 100 Year
  Sex: Female

DRUGS (1)
  1. MORPHINE [Suspect]
     Active Substance: MORPHINE
     Indication: Palliative care
     Dosage: ADMINISTRATION OF 10 TIMES THE DOSE
     Route: 040
     Dates: start: 20231004, end: 20231005

REACTIONS (4)
  - Overdose [Fatal]
  - Coma [Fatal]
  - Device programming error [Fatal]
  - Acute respiratory distress syndrome [Fatal]

NARRATIVE: CASE EVENT DATE: 20231004
